FAERS Safety Report 7068497-9 (Version None)
Quarter: 2010Q4

REPORT INFORMATION
  Report Type: 
  Country: None (occurrence: None)
  Receive Date: 20101020
  Receipt Date: 20101012
  Transmission Date: 20110411
  Serious: Yes (Other)
  Sender: FDA-Public Use
  Company Number: 2010SP054771

PATIENT
  Age: 71 Year
  Sex: Male

DRUGS (1)
  1. MUSCULAX (VECURONIUM BROMIDE /00600002/) [Suspect]
     Indication: NEUROMUSCULAR BLOCKADE
     Dosage: ; IV
     Route: 042

REACTIONS (5)
  - BLOOD CREATININE INCREASED [None]
  - DYSPNOEA [None]
  - DYSURIA [None]
  - GENERAL PHYSICAL CONDITION ABNORMAL [None]
  - RENAL IMPAIRMENT [None]
